FAERS Safety Report 22178164 (Version 1)
Quarter: 2023Q2

REPORT INFORMATION
  Report Type: Spontaneous
  Country: US (occurrence: None)
  Receive Date: 20230405
  Receipt Date: 20230405
  Transmission Date: 20230721
  Serious: No
  Sender: FDA-Public Use
  Company Number: None

PATIENT
  Sex: Female

DRUGS (1)
  1. ENBREL [Suspect]
     Active Substance: ETANERCEPT
     Indication: Rheumatoid arthritis
     Dosage: FREQUENCY: OTHER
     Route: 058
     Dates: start: 202211

REACTIONS (2)
  - Magnetic resonance imaging head abnormal [None]
  - Central nervous system lesion [None]

NARRATIVE: CASE EVENT DATE: 20230327
